FAERS Safety Report 17608654 (Version 1)
Quarter: 2020Q2

REPORT INFORMATION
  Report Type: Spontaneous
  Country: GB (occurrence: GB)
  Receive Date: 20200401
  Receipt Date: 20200401
  Transmission Date: 20200713
  Serious: Yes (Hospitalization)
  Sender: FDA-Public Use
  Company Number: GB-B.I. PHARMACEUTICALS,INC./RIDGEFIELD-2020-BI-016730

PATIENT
  Age: 32 Year
  Sex: Female

DRUGS (6)
  1. TIOTROPIUM BROMIDE [Suspect]
     Active Substance: TIOTROPIUM BROMIDE
     Indication: ASTHMA
     Route: 055
  2. SALBUTAMOL [Concomitant]
     Active Substance: ALBUTEROL
     Indication: ASTHMA
     Route: 065
  3. BUDESONIDE /FORMOTEROL [Concomitant]
     Indication: ASTHMA
     Dosage: BUDESONIDE 400 UG/FORMOTEROL 12 UG DRY POWDER INHALER, ONE PUFF TWICE DAILY PREVENTER THERAPY
     Route: 055
  4. FLUTICASONE/FORMOTEROL [Concomitant]
     Active Substance: FLUTICASONE\FORMOTEROL
     Indication: PRODUCT USED FOR UNKNOWN INDICATION
     Dosage: FLUTICASONE 250 UG/ FORMOTEROL 10 UG PRESSURISED METRED DOSE INHALER, 2 PUFFS TWICE DAILY VIA SPACER
     Route: 055
  5. OMEPRAZOLE. [Concomitant]
     Active Substance: OMEPRAZOLE
     Indication: GASTROOESOPHAGEAL REFLUX DISEASE
  6. MOMETASONE [Concomitant]
     Active Substance: MOMETASONE
     Indication: PRODUCT USED FOR UNKNOWN INDICATION
     Dosage: NASAL SPRAY
     Route: 048

REACTIONS (2)
  - Asthma [Recovering/Resolving]
  - Nasal polypectomy [Unknown]
